FAERS Safety Report 6286516-4 (Version None)
Quarter: 2009Q3

REPORT INFORMATION
  Report Type: 
  Country: None (occurrence: None)
  Receive Date: 20090727
  Receipt Date: 20090727
  Transmission Date: 20100115
  Serious: Yes (Other)
  Sender: FDA-Public Use
  Company Number: None

PATIENT
  Sex: Female
  Weight: 82.5547 kg

DRUGS (1)
  1. SMOKE EVERYWHERE.COM E-CIGERETTE [Suspect]

REACTIONS (3)
  - COUGH [None]
  - DIZZINESS [None]
  - WHITE BLOOD CELL COUNT INCREASED [None]
